FAERS Safety Report 4359133-0 (Version None)
Quarter: 2004Q2

REPORT INFORMATION
  Report Type: 
  Country: None (occurrence: None)
  Receive Date: 20040512
  Receipt Date: 20040503
  Transmission Date: 20050107
  Serious: Yes (Disabling)
  Sender: FDA-Public Use
  Company Number: 2003SE04637

PATIENT
  Age: 42 Year
  Sex: Male
  Weight: 85 kg

DRUGS (1)
  1. BUPIVACAINE [Suspect]
     Indication: SPINAL ANAESTHESIA
     Dosage: 5 MG/ML IT
     Route: 037
     Dates: start: 20030912, end: 20030912

REACTIONS (10)
  - ABDOMINAL TENDERNESS [None]
  - ANAESTHETIC COMPLICATION [None]
  - CAUDA EQUINA SYNDROME [None]
  - DIZZINESS [None]
  - DYSSTASIA [None]
  - FLANK PAIN [None]
  - FORMICATION [None]
  - MYALGIA [None]
  - PARAESTHESIA [None]
  - POST PROCEDURAL PAIN [None]
